FAERS Safety Report 5067878-2 (Version None)
Quarter: 2006Q3

REPORT INFORMATION
  Report Type: 
  Country: None (occurrence: None)
  Receive Date: 20060731
  Receipt Date: 20060719
  Transmission Date: 20061208
  Serious: Yes (Death)
  Sender: FDA-Public Use
  Company Number: 06H-163-0309293-00

PATIENT
  Age: 74 Year
  Sex: Male

DRUGS (1)
  1. NITROPRESS [Suspect]
     Indication: HYPERTENSION
     Dosage: 1.58 ML, CONTINUOUS, INTRAVENOUS
     Route: 042
     Dates: start: 20060522, end: 20060522

REACTIONS (8)
  - ACUTE RESPIRATORY DISTRESS SYNDROME [None]
  - ATRIAL FIBRILLATION [None]
  - ATRIAL FLUTTER [None]
  - BACTERIAL SEPSIS [None]
  - HEPARIN-INDUCED THROMBOCYTOPENIA [None]
  - MULTI-ORGAN FAILURE [None]
  - PNEUMONIA [None]
  - RENAL FAILURE ACUTE [None]
